FAERS Safety Report 5121347-X (Version None)
Quarter: 2006Q4

REPORT INFORMATION
  Report Type: 
  Country: None (occurrence: None)
  Receive Date: 20061002
  Receipt Date: 20060918
  Transmission Date: 20070319
  Serious: Yes (Hospitalization)
  Sender: FDA-Public Use
  Company Number: US200609004346

PATIENT
  Age: 53 Year
  Sex: Male
  Weight: 99.8 kg

DRUGS (2)
  1. ZYPREXA [Suspect]
     Dosage: 2.5 MG,
     Dates: start: 19980501, end: 20040101
  2. CELEXA [Concomitant]

REACTIONS (3)
  - BLOOD CHOLESTEROL ABNORMAL [None]
  - CARDIAC DISORDER [None]
  - DIABETES MELLITUS [None]
